FAERS Safety Report 10473425 (Version 1)
Quarter: 2014Q3

REPORT INFORMATION
  Report Type: Spontaneous
  Country: US (occurrence: None)
  Receive Date: 20140923
  Receipt Date: 20140923
  Transmission Date: 20150326
  Serious: Yes (Hospitalization)
  Sender: FDA-Public Use
  Company Number: None

PATIENT
  Age: 69 Year
  Sex: Male
  Weight: 68.05 kg

DRUGS (1)
  1. ONCASPAR [Suspect]
     Active Substance: PEGASPARGASE
     Dosage: 4750 UNIT
     Dates: end: 20140822

REACTIONS (13)
  - Headache [None]
  - Vomiting [None]
  - Abdominal distension [None]
  - Flushing [None]
  - Intracranial pressure increased [None]
  - Convulsion [None]
  - Unresponsive to stimuli [None]
  - Haemorrhage intracranial [None]
  - Drug effect decreased [None]
  - Blood urea increased [None]
  - Chest discomfort [None]
  - Blood creatinine increased [None]
  - Superior sagittal sinus thrombosis [None]

NARRATIVE: CASE EVENT DATE: 20140908
